FAERS Safety Report 8293870-0 (Version None)
Quarter: 2012Q2

REPORT INFORMATION
  Report Type: 
  Country: None (occurrence: None)
  Receive Date: 20120413
  Receipt Date: 20120413
  Transmission Date: 20120825
  Serious: Yes (Disabling)
  Sender: FDA-Public Use
  Company Number: None

PATIENT
  Sex: Female
  Weight: 77.1115 kg

DRUGS (1)
  1. WELCHOL [Suspect]
     Indication: BLOOD CHOLESTEROL INCREASED
     Dosage: 3.75 G DAILY 1 DOSE ORAL
     Route: 048
     Dates: start: 20110606, end: 20120326

REACTIONS (2)
  - MUSCULAR WEAKNESS [None]
  - ABASIA [None]
